FAERS Safety Report 12442775 (Version 1)
Quarter: 2016Q2

REPORT INFORMATION
  Report Type: Spontaneous
  Country: US (occurrence: None)
  Receive Date: 20160606
  Receipt Date: 20160606
  Transmission Date: 20160815
  Serious: Yes (Hospitalization)
  Sender: FDA-Public Use
  Company Number: None

PATIENT
  Age: 76 Year
  Sex: Male
  Weight: 81.65 kg

DRUGS (9)
  1. SIMVISTATIN [Concomitant]
     Active Substance: SIMVASTATIN
  2. ADVAIR HFA [Concomitant]
     Active Substance: FLUTICASONE PROPIONATE\SALMETEROL XINAFOATE
  3. FLUOXETENE [Concomitant]
  4. SYNTHROID [Concomitant]
     Active Substance: LEVOTHYROXINE SODIUM
  5. AXIRON [Concomitant]
     Active Substance: TESTOSTERONE
  6. ATENELOL [Concomitant]
     Active Substance: ATENOLOL
  7. TAMSULOSIN [Concomitant]
     Active Substance: TAMSULOSIN
  8. PROLIA [Suspect]
     Active Substance: DENOSUMAB
     Indication: OSTEOPOROSIS
     Dosage: 1 SHOT EVERY 6 MON GIVEN INTO/UNDER THE SKIN
     Dates: start: 20150715, end: 20150715
  9. MECLIZINE [Concomitant]
     Active Substance: MECLIZINE HYDROCHLORIDE

REACTIONS (11)
  - Constipation [None]
  - Dry mouth [None]
  - Impaired driving ability [None]
  - Unevaluable event [None]
  - Flatulence [None]
  - Neck pain [None]
  - Dizziness [None]
  - Arthralgia [None]
  - Disorientation [None]
  - Diarrhoea [None]
  - Night sweats [None]

NARRATIVE: CASE EVENT DATE: 20160514
